FAERS Safety Report 4976034-5 (Version None)
Quarter: 2006Q2

REPORT INFORMATION
  Report Type: 
  Country: None (occurrence: None)
  Receive Date: 20060403
  Receipt Date: 20060324
  Transmission Date: 20061013
  Serious: Yes (Hospitalization)
  Sender: FDA-Public Use
  Company Number: GBWYE360002FEB06

PATIENT
  Age: 15 Month
  Sex: Male

DRUGS (1)
  1. REFACTO [Suspect]
     Indication: HAEMOPHILIA
     Dosage: 250 IU ON DEMAND  INTRAVENOUS
     Route: 042
     Dates: start: 20050121, end: 20050825

REACTIONS (3)
  - FACTOR VIII INHIBITION [None]
  - SUBDURAL HAEMATOMA [None]
  - THERAPY NON-RESPONDER [None]
